FAERS Safety Report 23190978 (Version 3)
Quarter: 2023Q4

REPORT INFORMATION
  Report Type: Spontaneous
  Country: US (occurrence: US)
  Receive Date: 20231116
  Receipt Date: 20231220
  Transmission Date: 20240110
  Serious: No
  Sender: FDA-Public Use
  Company Number: US-PFIZER INC-202300359526

PATIENT
  Age: 15 Year
  Sex: Male

DRUGS (2)
  1. GENOTROPIN [Suspect]
     Active Substance: SOMATROPIN
     Dosage: 2 MG, ALTERNATE DAY (ALTERNATE 2.0MG + 2.2MG EVERY OTHER DAY, 7 DAYS PER WEEK)
  2. GENOTROPIN [Suspect]
     Active Substance: SOMATROPIN
     Dosage: 2.2 MG, ALTERNATE DAY (ALTERNATE 2.0MG + 2.2MG EVERY OTHER DAY, 7 DAYS PER WEEK)

REACTIONS (3)
  - Wrong technique in device usage process [Unknown]
  - Device defective [Unknown]
  - Device information output issue [Unknown]
